FAERS Safety Report 15723483 (Version 1)
Quarter: 2018Q4

REPORT INFORMATION
  Report Type: Spontaneous
  Country: CN (occurrence: CN)
  Receive Date: 20181214
  Receipt Date: 20181214
  Transmission Date: 20190205
  Serious: Yes (Other)
  Sender: FDA-Public Use
  Company Number: CN-BRISTOL-MYERS SQUIBB COMPANY-BMS-2018-115948

PATIENT
  Age: 49 Year
  Sex: Male

DRUGS (2)
  1. CYTOKINE INDUCED KILLER CELLS [Suspect]
     Active Substance: INVESTIGATIONAL PRODUCT
     Indication: NON-SMALL CELL LUNG CANCER
     Dosage: 6 CYCLES
     Route: 065
  2. NIVOLUMAB [Suspect]
     Active Substance: NIVOLUMAB
     Indication: NON-SMALL CELL LUNG CANCER
     Dosage: 6 CYCLES
     Route: 065

REACTIONS (3)
  - Fatigue [Recovered/Resolved]
  - Malignant neoplasm progression [Unknown]
  - Leukopenia [Not Recovered/Not Resolved]
